FAERS Safety Report 4331685-6 (Version None)
Quarter: 2004Q2

REPORT INFORMATION
  Report Type: 
  Country: None (occurrence: None)
  Receive Date: 20040405
  Receipt Date: 20020503
  Transmission Date: 20050107
  Serious: No
  Sender: FDA-Public Use
  Company Number: US-GLAXOSMITHKLINE-A0368960A

PATIENT
  Age: 46 Year
  Sex: Male

DRUGS (10)
  1. FLOVENT [Suspect]
     Indication: ASTHMA
     Route: 055
  2. ADVAIR DISKUS 100/50 [Suspect]
     Indication: ASTHMA
     Route: 055
     Dates: start: 20030725, end: 20030728
  3. SEREVENT [Suspect]
     Indication: ASTHMA
     Route: 055
  4. ALBUTEROL [Concomitant]
     Indication: ASTHMA
     Route: 065
  5. SINGULAIR [Concomitant]
     Indication: ASTHMA
     Route: 065
  6. CLARITIN [Concomitant]
  7. THEO-DUR [Concomitant]
  8. ALBUTEROL [Concomitant]
  9. NEXIUM [Concomitant]
  10. HYDROCHLOROTHIAZIDE [Concomitant]

REACTIONS (10)
  - DRUG INEFFECTIVE [None]
  - FEELING COLD [None]
  - FEELING HOT [None]
  - HEADACHE [None]
  - HEART RATE INCREASED [None]
  - HYPERHIDROSIS [None]
  - PAIN [None]
  - PHARYNGOLARYNGEAL PAIN [None]
  - SKIN DISCOLOURATION [None]
  - VISION BLURRED [None]
